FAERS Safety Report 24401512 (Version 1)
Quarter: 2024Q4

REPORT INFORMATION
  Report Type: Spontaneous
  Country: US (occurrence: US)
  Receive Date: 20241007
  Receipt Date: 20241007
  Transmission Date: 20250115
  Serious: Yes (Hospitalization, Other)
  Sender: APOTEX
  Company Number: US-APOTEX-2024AP011669

PATIENT
  Age: 73 Year
  Sex: Female

DRUGS (4)
  1. LITHIUM [Suspect]
     Active Substance: LITHIUM
     Indication: Bipolar disorder
     Dosage: 300 MILLIGRAM, QD
     Route: 065
  2. NPH INSULIN [Concomitant]
     Active Substance: INSULIN BEEF
     Indication: Type 1 diabetes mellitus
     Dosage: 30 INTERNATIONAL UNIT, BID
     Route: 065
  3. LISINOPRIL [Concomitant]
     Active Substance: LISINOPRIL
     Indication: Hypertension
     Dosage: 2.5 MILLIGRAM, QD
     Route: 065
  4. RISPERIDONE [Concomitant]
     Active Substance: RISPERIDONE
     Indication: Schizophrenia
     Dosage: 3 MILLIGRAM, QD
     Route: 065

REACTIONS (5)
  - Sinoatrial block [Recovering/Resolving]
  - Nodal rhythm [Recovering/Resolving]
  - Antipsychotic drug level above therapeutic [Recovering/Resolving]
  - Sinus node dysfunction [Recovered/Resolved]
  - Toxicity to various agents [Recovering/Resolving]

NARRATIVE: CASE EVENT DATE: 20231101
